FAERS Safety Report 20416151 (Version 1)
Quarter: 2022Q1

REPORT INFORMATION
  Report Type: Spontaneous
  Country: CN (occurrence: CN)
  Receive Date: 20220202
  Receipt Date: 20220202
  Transmission Date: 20220423
  Serious: No
  Sender: FDA-Public Use
  Company Number: CN-LUPIN PHARMACEUTICALS INC.-2022-01057

PATIENT
  Age: 81 Year
  Sex: Female

DRUGS (9)
  1. MOXIFLOXACIN [Suspect]
     Active Substance: MOXIFLOXACIN
     Indication: COVID-19 pneumonia
     Dosage: 400 MILLIGRAM, QD
     Route: 048
     Dates: start: 202001, end: 2020
  2. MOXIFLOXACIN [Suspect]
     Active Substance: MOXIFLOXACIN
     Dosage: 0.4 GRAM, QD
     Route: 042
     Dates: start: 202002
  3. OSELTAMIVIR [Suspect]
     Active Substance: OSELTAMIVIR
     Indication: COVID-19 pneumonia
     Dosage: 75 MILLIGRAM, BID
     Route: 048
     Dates: start: 202001, end: 2020
  4. NORFLOXACIN [Suspect]
     Active Substance: NORFLOXACIN
     Indication: COVID-19 pneumonia
     Dosage: 400 MILLIGRAM, BID
     Route: 048
     Dates: start: 20200125
  5. UMIFENOVIR [Suspect]
     Active Substance: UMIFENOVIR
     Indication: COVID-19 pneumonia
     Dosage: 100 MILLIGRAM, TID
     Route: 048
     Dates: start: 20200206, end: 20200220
  6. METOPROLOL [Concomitant]
     Active Substance: METOPROLOL
     Indication: Heart rate abnormal
     Dosage: 47.5 MILLIGRAM, QD
     Route: 048
     Dates: start: 202002
  7. INSULIN NOS [Concomitant]
     Active Substance: INSULIN NOS
     Indication: Blood glucose abnormal
     Dosage: UNK
     Route: 065
     Dates: start: 202002
  8. MONTELUKAST SODIUM [Concomitant]
     Active Substance: MONTELUKAST SODIUM
     Indication: Wheezing
     Dosage: 10 MILLIGRAM
     Route: 048
     Dates: start: 20200223
  9. MONTELUKAST SODIUM [Concomitant]
     Active Substance: MONTELUKAST SODIUM
     Indication: Dyspnoea

REACTIONS (1)
  - Off label use [Unknown]

NARRATIVE: CASE EVENT DATE: 20200101
